FAERS Safety Report 5712040-0 (Version None)
Quarter: 2008Q2

REPORT INFORMATION
  Report Type: 
  Country: None (occurrence: None)
  Receive Date: 20080417
  Receipt Date: 20080402
  Transmission Date: 20081010
  Serious: Yes (Hospitalization, Other)
  Sender: FDA-Public Use
  Company Number: DSA_31642_2008

PATIENT
  Sex: Male

DRUGS (2)
  1. LORAZEPAM [Suspect]
     Dosage: (16.5 MG 1X NOT THE PRESCRIBED AMOUNT. ORAL)
     Route: 048
     Dates: start: 20080313, end: 20080313
  2. SOLIAN [Concomitant]

REACTIONS (6)
  - AMNESIA [None]
  - EJACULATION FAILURE [None]
  - FALL [None]
  - INTENTIONAL OVERDOSE [None]
  - ORGASM ABNORMAL [None]
  - SUICIDE ATTEMPT [None]
